FAERS Safety Report 13881021 (Version 2)
Quarter: 2017Q4

REPORT INFORMATION
  Report Type: Spontaneous
  Country: US (occurrence: US)
  Receive Date: 20170818
  Receipt Date: 20171010
  Transmission Date: 20180320
  Serious: No
  Sender: FDA-Public Use
  Company Number: US-ASTRAZENECA-2017SE83313

PATIENT
  Sex: Male
  Weight: 96.6 kg

DRUGS (2)
  1. OXYGEN. [Concomitant]
     Active Substance: OXYGEN
     Indication: DYSPNOEA
     Dosage: TWO LITERS AT NIGHT  AND TWO LITERS AS NEEDED DURING THE DAY
     Route: 055
     Dates: start: 2015
  2. TUDORZA PRESSAIR [Suspect]
     Active Substance: ACLIDINIUM BROMIDE
     Indication: CHRONIC OBSTRUCTIVE PULMONARY DISEASE
     Route: 055
     Dates: start: 2016

REACTIONS (4)
  - Intentional product misuse [Unknown]
  - Device failure [Unknown]
  - Oxygen saturation abnormal [Not Recovered/Not Resolved]
  - Product quality issue [Unknown]
